FAERS Safety Report 6772606-6 (Version None)
Quarter: 2010Q2

REPORT INFORMATION
  Report Type: 
  Country: None (occurrence: None)
  Receive Date: 20100616
  Receipt Date: 20090630
  Transmission Date: 20101027
  Serious: No
  Sender: FDA-Public Use
  Company Number: US-ASTRAZENECA-2009UW18238

PATIENT
  Age: 4 Year
  Sex: Male

DRUGS (3)
  1. PULMICORT RESPULES [Suspect]
     Indication: ASTHMA
     Dosage: 0.5MG/2ML
     Route: 055
  2. PULMICORT RESPULES [Suspect]
     Dosage: TWO 0.5MG/2ML VIALS PER DOSE
     Route: 055
  3. SINGULAIR [Concomitant]

REACTIONS (2)
  - ADVERSE EVENT [None]
  - COUGH [None]
